FAERS Safety Report 10445896 (Version 2)
Quarter: 2014Q3

REPORT INFORMATION
  Report Type: Report from Study
  Country: US (occurrence: US)
  Receive Date: 20140910
  Receipt Date: 20140910
  Transmission Date: 20150326
  Serious: Yes (Hospitalization)
  Sender: FDA-Public Use
  Company Number: US-SA-2014SA052693

PATIENT
  Age: 49 Year
  Sex: Female

DRUGS (1)
  1. AUBAGIO [Suspect]
     Active Substance: TERIFLUNOMIDE
     Indication: MULTIPLE SCLEROSIS
     Route: 048
     Dates: start: 20140412

REACTIONS (8)
  - Cardiac operation [Unknown]
  - Irritability [Unknown]
  - Hypoaesthesia [Unknown]
  - Depression [Unknown]
  - Alopecia [Recovering/Resolving]
  - Fatigue [Unknown]
  - Pain [Unknown]
  - Paraesthesia oral [Unknown]

NARRATIVE: CASE EVENT DATE: 201404
